FAERS Safety Report 19483625 (Version 1)
Quarter: 2021Q3

REPORT INFORMATION
  Report Type: Spontaneous
  Country: US (occurrence: US)
  Receive Date: 20210701
  Receipt Date: 20210701
  Transmission Date: 20211014
  Serious: No
  Sender: FDA-Public Use
  Company Number: US-ROCHE-2673190

PATIENT
  Sex: Female

DRUGS (9)
  1. TRAZODONE [Concomitant]
     Active Substance: TRAZODONE HYDROCHLORIDE
  2. OPANA [Concomitant]
     Active Substance: OXYMORPHONE HYDROCHLORIDE
  3. PHENERGAN [Concomitant]
     Active Substance: PROMETHAZINE HYDROCHLORIDE
  4. FENTANYL. [Concomitant]
     Active Substance: FENTANYL
  5. KLONOPIN [Suspect]
     Active Substance: CLONAZEPAM
     Indication: PRODUCT USED FOR UNKNOWN INDICATION
     Route: 065
  6. HYDROMORPHONE [Concomitant]
     Active Substance: HYDROMORPHONE
  7. OXYCODONE [Concomitant]
     Active Substance: OXYCODONE
  8. PRILOSEC [Concomitant]
     Active Substance: OMEPRAZOLE MAGNESIUM
  9. ZOLOFT [Concomitant]
     Active Substance: SERTRALINE HYDROCHLORIDE

REACTIONS (11)
  - Insomnia [Unknown]
  - Neck pain [Unknown]
  - Fall [Unknown]
  - Mental disorder [Unknown]
  - Gait disturbance [Unknown]
  - Nightmare [Unknown]
  - Amnesia [Unknown]
  - Dementia [Unknown]
  - Illness [Unknown]
  - Vomiting [Unknown]
  - Rheumatoid arthritis [Unknown]
